FAERS Safety Report 5691533-9 (Version None)
Quarter: 2008Q2

REPORT INFORMATION
  Report Type: 
  Country: None (occurrence: None)
  Receive Date: 20080402
  Receipt Date: 20061219
  Transmission Date: 20081010
  Serious: Yes (Hospitalization)
  Sender: FDA-Public Use
  Company Number: FR-NOVOPROD-252686

PATIENT
  Age: 23 Year
  Sex: Male
  Weight: 75 kg

DRUGS (5)
  1. NORDITROPIN [Suspect]
     Indication: GROWTH HORMONE DEFICIENCY
     Dosage: .3 MG, QD
     Route: 058
     Dates: start: 20050210
  2. LEVOTHYROXINE SODIUM [Concomitant]
     Dosage: 200 UG, QD
     Dates: start: 19841001
  3. HYDROCORTISONE [Concomitant]
     Dosage: 20 MG, UNK
     Route: 048
     Dates: start: 19841001
  4. MINRIN [Concomitant]
     Indication: DIABETES INSIPIDUS
     Dosage: 0,4MG QD
     Route: 048
     Dates: start: 19841001
  5. ANDROTARDYL [Concomitant]
     Indication: BLOOD LUTEINISING HORMONE ABNORMAL
     Dosage: 250 MG, QD
     Route: 048
     Dates: start: 19970901

REACTIONS (8)
  - ANOREXIA [None]
  - ASTHENIA [None]
  - BRAIN SCAN ABNORMAL [None]
  - ELECTROENCEPHALOGRAM ABNORMAL [None]
  - EPILEPSY [None]
  - PALLOR [None]
  - SOMNOLENCE [None]
  - WEIGHT DECREASED [None]
